FAERS Safety Report 4939416-3 (Version None)
Quarter: 2006Q1

REPORT INFORMATION
  Report Type: 
  Country: None (occurrence: None)
  Receive Date: 20060307
  Receipt Date: 20060222
  Transmission Date: 20060701
  Serious: Yes (Other)
  Sender: FDA-Public Use
  Company Number: B0413889A

PATIENT
  Age: 41 Year
  Sex: Male

DRUGS (4)
  1. LITHIUM CARBONATE [Suspect]
     Indication: SCHIZOAFFECTIVE DISORDER
  2. ZIPRASIDONE HCL [Suspect]
     Dosage: INTRAMUSCULAR
     Route: 030
  3. NEUROLEPTIC [Concomitant]
  4. CHLORPROMAZINE HCL [Concomitant]

REACTIONS (12)
  - BLOOD SODIUM INCREASED [None]
  - CONDITION AGGRAVATED [None]
  - CONFUSIONAL STATE [None]
  - COORDINATION ABNORMAL [None]
  - DRUG INTERACTION [None]
  - DYSARTHRIA [None]
  - GAIT DISTURBANCE [None]
  - HYPOMANIA [None]
  - IRRITABILITY [None]
  - SOMNOLENCE [None]
  - THERAPEUTIC AGENT TOXICITY [None]
  - TREMOR [None]
